FAERS Safety Report 7211960-8 (Version None)
Quarter: 2011Q1

REPORT INFORMATION
  Report Type: 
  Country: None (occurrence: None)
  Receive Date: 20110106
  Receipt Date: 20101228
  Transmission Date: 20110831
  Serious: No
  Sender: FDA-Public Use
  Company Number: US-BIOGENIDEC-2011BI000371

PATIENT
  Age: 48 Year
  Sex: Male

DRUGS (3)
  1. TYSABRI [Suspect]
     Indication: MULTIPLE SCLEROSIS
     Route: 042
     Dates: start: 20101215
  2. TYSABRI [Suspect]
     Route: 042
     Dates: start: 20070726, end: 20100317
  3. COPAXONE [Concomitant]
     Dates: start: 20100101, end: 20100101

REACTIONS (1)
  - MULTIPLE SCLEROSIS RELAPSE [None]
